FAERS Safety Report 8913145 (Version 1)
Quarter: 2012Q4

REPORT INFORMATION
  Report Type: 
  Country: US (occurrence: US)
  Receive Date: 20121116
  Receipt Date: 20121116
  Transmission Date: 20130627
  Serious: No
  Sender: FDA-Public Use
  Company Number: US-009507513-1211USA005402

PATIENT
  Age: 47 Year
  Sex: Female

DRUGS (5)
  1. REMERON [Suspect]
     Indication: DEPRESSION
  2. GEODON [Concomitant]
  3. ATIVAN [Concomitant]
  4. TOFRANIL [Concomitant]
  5. LEVOXYL [Concomitant]

REACTIONS (1)
  - Drug ineffective [Unknown]
